FAERS Safety Report 7003379-X (Version None)
Quarter: 2010Q3

REPORT INFORMATION
  Report Type: 
  Country: None (occurrence: None)
  Receive Date: 20100920
  Receipt Date: 20100910
  Transmission Date: 20110219
  Serious: No
  Sender: FDA-Public Use
  Company Number: US-PFIZER INC-2010100599

PATIENT
  Sex: Female
  Weight: 63.039 kg

DRUGS (4)
  1. DIFLUCAN [Suspect]
     Indication: FUNGAL INFECTION
     Dosage: 100 MG, DAILY
     Route: 048
     Dates: start: 20070101
  2. DIFLUCAN [Interacting]
     Indication: VAGINAL INFECTION
  3. OXYCONTIN [Interacting]
     Indication: PAIN
     Dosage: 80 MG, 2X/DAY
     Route: 048
     Dates: start: 20080101
  4. RAMIPRIL [Concomitant]
     Indication: HYPERTENSION
     Dosage: UNK

REACTIONS (9)
  - ABDOMINAL PAIN UPPER [None]
  - CHILLS [None]
  - DEPRESSION [None]
  - DRUG EFFECT INCREASED [None]
  - DRUG INTERACTION [None]
  - HYPERHIDROSIS [None]
  - TREMOR [None]
  - WEIGHT INCREASED [None]
  - WITHDRAWAL SYNDROME [None]
